FAERS Safety Report 16375131 (Version 1)
Quarter: 2019Q2

REPORT INFORMATION
  Report Type: Spontaneous
  Country: US (occurrence: US)
  Receive Date: 20190531
  Receipt Date: 20190531
  Transmission Date: 20190711
  Serious: No
  Sender: FDA-Public Use
  Company Number: US-ELI_LILLY_AND_COMPANY-US201905013008

PATIENT
  Sex: Female
  Weight: 84 kg

DRUGS (3)
  1. TRACLEER BOSENTAN [Concomitant]
     Indication: PRODUCT USED FOR UNKNOWN INDICATION
  2. REMODULIN [Concomitant]
     Active Substance: TREPROSTINIL
     Indication: PULMONARY ARTERIAL HYPERTENSION
     Dosage: UNK
     Dates: start: 20181106
  3. ADCIRCA [Suspect]
     Active Substance: TADALAFIL
     Indication: PRODUCT USED FOR UNKNOWN INDICATION
     Dosage: UNK UNK, UNKNOWN
     Route: 065

REACTIONS (8)
  - Pulmonary oedema [Unknown]
  - Dizziness [Unknown]
  - Headache [Unknown]
  - Pollakiuria [Unknown]
  - Flushing [Unknown]
  - Crying [Unknown]
  - Pain in extremity [Unknown]
  - Micturition urgency [Unknown]
